FAERS Safety Report 19127468 (Version 1)
Quarter: 2021Q2

REPORT INFORMATION
  Report Type: Spontaneous
  Country: US (occurrence: US)
  Receive Date: 20210413
  Receipt Date: 20210413
  Transmission Date: 20210717
  Serious: No
  Sender: FDA-Public Use
  Company Number: None

PATIENT
  Age: 79 Year
  Sex: Female
  Weight: 55.33 kg

DRUGS (6)
  1. IMDEVIMAB. [Suspect]
     Active Substance: IMDEVIMAB
     Indication: COVID-19
     Dosage: ?          OTHER FREQUENCY:ONETIME ORDER;?
     Route: 042
     Dates: start: 20210412, end: 20210412
  2. LOVENOX [Concomitant]
     Active Substance: ENOXAPARIN SODIUM
     Dates: start: 20210408
  3. FAMOTIDINE 40MG [Concomitant]
     Active Substance: FAMOTIDINE
     Dates: start: 20210408
  4. ASPIRIN 81MG [Concomitant]
     Active Substance: ASPIRIN
     Dates: start: 20210408
  5. CASIRIVIMAB. [Suspect]
     Active Substance: CASIRIVIMAB
     Indication: COVID-19
     Dosage: ?          OTHER FREQUENCY:ONETIME ORDER;?
     Route: 042
     Dates: start: 20210412, end: 20210412
  6. METFORMIN [Concomitant]
     Active Substance: METFORMIN HYDROCHLORIDE
     Dates: start: 20210408

REACTIONS (1)
  - Chest pain [None]

NARRATIVE: CASE EVENT DATE: 20210412
